FAERS Safety Report 23389132 (Version 1)
Quarter: 2024Q1

REPORT INFORMATION
  Report Type: Spontaneous
  Country: FR (occurrence: FR)
  Receive Date: 20240110
  Receipt Date: 20240110
  Transmission Date: 20240410
  Serious: Yes (Other)
  Sender: FDA-Public Use
  Company Number: FR-PFIZER INC-PV202400002904

PATIENT
  Age: 43 Year
  Sex: Female

DRUGS (1)
  1. OXBRYTA [Suspect]
     Active Substance: VOXELOTOR
     Indication: Haemolytic anaemia
     Dosage: 1500 MG, DAILY
     Route: 048
     Dates: start: 20211220, end: 20220131

REACTIONS (5)
  - Toxic skin eruption [Unknown]
  - Hepatic cytolysis [Unknown]
  - Pyrexia [Unknown]
  - Mucocutaneous disorder [Unknown]
  - Lymphadenopathy [Unknown]
